FAERS Safety Report 13901024 (Version 2)
Quarter: 2018Q2

REPORT INFORMATION
  Report Type: Spontaneous
  Country: IN (occurrence: IN)
  Receive Date: 20170824
  Receipt Date: 20180625
  Transmission Date: 20180711
  Serious: Yes (Hospitalization, Other)
  Sender: FDA-Public Use
  Company Number: IN-SUN PHARMACEUTICAL INDUSTRIES LTD-2016R1-120101

PATIENT
  Age: 21 Year
  Sex: Male

DRUGS (4)
  1. FLUVOXAMINE [Suspect]
     Active Substance: FLUVOXAMINE
     Indication: DEPRESSION
     Dosage: INITIAL DOSE OF 50 MG TO BE HIKED BY 50 MG EVERY 4TH DAY
     Route: 065
  2. FLUVOXAMINE [Suspect]
     Active Substance: FLUVOXAMINE
     Dosage: INCREASED TO 250 MG
     Route: 065
  3. FLUVOXAMINE [Suspect]
     Active Substance: FLUVOXAMINE
     Dosage: REDUCED TO 150 MG
     Route: 065
  4. FLUVOXAMINE [Suspect]
     Active Substance: FLUVOXAMINE
     Dosage: DECREASED TO 150 MG AND FURTHER HIKING WAS PLANNED EVERY 8TH DAY
     Route: 065

REACTIONS (2)
  - Mania [Recovering/Resolving]
  - Oculogyric crisis [Recovered/Resolved]
